FAERS Safety Report 5360143-5 (Version None)
Quarter: 2007Q2

REPORT INFORMATION
  Report Type: 
  Country: None (occurrence: None)
  Receive Date: 20070618
  Receipt Date: 20070613
  Transmission Date: 20071010
  Serious: Yes (Other)
  Sender: FDA-Public Use
  Company Number: PHBS2007CL06515

PATIENT
  Age: 62 Year
  Sex: Female

DRUGS (3)
  1. TAREG D [Suspect]
     Indication: BLOOD PRESSURE INCREASED
     Dosage: VALS 160 / HCT 12.5 MG/DAY
     Route: 048
     Dates: start: 20030101
  2. CIMAL [Concomitant]
  3. EUTIROX [Concomitant]
     Dosage: 1 TABLET/DAY
     Route: 048

REACTIONS (2)
  - CEREBRAL ISCHAEMIA [None]
  - GAIT DISTURBANCE [None]
